FAERS Safety Report 17214370 (Version 2)
Quarter: 2020Q1

REPORT INFORMATION
  Report Type: Spontaneous
  Country: US (occurrence: US)
  Receive Date: 20191230
  Receipt Date: 20200117
  Transmission Date: 20200409
  Serious: No
  Sender: FDA-Public Use
  Company Number: US-MYLANLABS-2019M1125328

PATIENT
  Age: 48 Year
  Sex: Male
  Weight: 134 kg

DRUGS (2)
  1. LOSARTAN. [Concomitant]
     Active Substance: LOSARTAN
     Dosage: UNK
  2. FEBUXOSTAT TABLETS [Suspect]
     Active Substance: FEBUXOSTAT
     Indication: GOUT
     Dosage: 40 MILLIGRAM QD
     Route: 048
     Dates: start: 20191209, end: 20191211

REACTIONS (6)
  - Anxiety [Recovering/Resolving]
  - Chest pain [Recovered/Resolved]
  - Feeling abnormal [None]
  - Thinking abnormal [Recovered/Resolved]
  - Dyspnoea [Recovered/Resolved]
  - Product dose omission [Not Recovered/Not Resolved]

NARRATIVE: CASE EVENT DATE: 20191210
